FAERS Safety Report 20461137 (Version 1)
Quarter: 2022Q1

REPORT INFORMATION
  Report Type: Spontaneous
  Country: MY (occurrence: MY)
  Receive Date: 20220211
  Receipt Date: 20220211
  Transmission Date: 20220423
  Serious: Yes (Hospitalization, Other)
  Sender: FDA-Public Use
  Company Number: MY-PFIZER INC-202200206321

PATIENT
  Age: 46 Year
  Sex: Male

DRUGS (2)
  1. FLUCONAZOLE [Suspect]
     Active Substance: FLUCONAZOLE
     Indication: Pneumonia cryptococcal
     Dosage: 400 MG, 2X/DAY
     Route: 042
  2. FLUCYTOSINE [Concomitant]
     Active Substance: FLUCYTOSINE
     Indication: Pneumonia cryptococcal
     Dosage: 1.5 G, 4X/DAY ((25 MG/KG) EVERY 6 HOURS)

REACTIONS (2)
  - Ataxia [Recovered/Resolved]
  - Neurological decompensation [Recovered/Resolved]
